FAERS Safety Report 15006512 (Version 1)
Quarter: 2018Q2

REPORT INFORMATION
  Report Type: Report from Study
  Country: US (occurrence: US)
  Receive Date: 20180613
  Receipt Date: 20180613
  Transmission Date: 20180711
  Serious: No
  Sender: FDA-Public Use
  Company Number: US-US WORLDMEDS, LLC-USW201708-001134

PATIENT
  Sex: Male

DRUGS (17)
  1. APOKYN [Suspect]
     Active Substance: APOMORPHINE HYDROCHLORIDE
  2. APOKYN [Suspect]
     Active Substance: APOMORPHINE HYDROCHLORIDE
  3. APOKYN [Suspect]
     Active Substance: APOMORPHINE HYDROCHLORIDE
     Dates: end: 201801
  4. COREG [Concomitant]
     Active Substance: CARVEDILOL
  5. MIRALAX [Concomitant]
     Active Substance: POLYETHYLENE GLYCOL 3350
  6. LASIX [Concomitant]
     Active Substance: FUROSEMIDE
  7. ZOLOFT [Concomitant]
     Active Substance: SERTRALINE HYDROCHLORIDE
  8. PRADEXA [Concomitant]
  9. SINEMET [Concomitant]
     Active Substance: CARBIDOPA\LEVODOPA
  10. RESTASIS [Concomitant]
     Active Substance: CYCLOSPORINE
  11. XANAX [Concomitant]
     Active Substance: ALPRAZOLAM
  12. APOKYN [Suspect]
     Active Substance: APOMORPHINE HYDROCHLORIDE
     Indication: PARKINSON^S DISEASE
     Route: 058
     Dates: start: 20170516
  13. SINEMET [Concomitant]
     Active Substance: CARBIDOPA\LEVODOPA
  14. ZOCOR [Concomitant]
     Active Substance: SIMVASTATIN
  15. APOKYN [Suspect]
     Active Substance: APOMORPHINE HYDROCHLORIDE
  16. RANEXA [Concomitant]
     Active Substance: RANOLAZINE
  17. METAZALONE [Concomitant]

REACTIONS (9)
  - Nausea [Recovered/Resolved]
  - Fatigue [Recovered/Resolved]
  - Asthenia [Recovered/Resolved]
  - Rhinorrhoea [Recovered/Resolved]
  - Malaise [Recovered/Resolved]
  - Fall [Unknown]
  - Gait disturbance [Unknown]
  - Somnolence [Recovered/Resolved]
  - Drug ineffective [Unknown]

NARRATIVE: CASE EVENT DATE: 2017
